FAERS Safety Report 8021019 (Version 2)
Quarter: 2012Q4

REPORT INFORMATION
  Report Type: 
  Country: US (occurrence: US)
  Receive Date: 20110705
  Receipt Date: 20121211
  Transmission Date: 20130627
  Serious: Yes (Other)
  Sender: FDA-Public Use
  Company Number: US-ROCHE-701313

PATIENT
  Age: 23 None
  Sex: Female
  Weight: 55.8 kg

DRUGS (3)
  1. ACCUTANE [Suspect]
     Indication: ACNE
     Dosage: DOSE AND FREQUENCY: 40 MG AND 80 MG ON ALTERNATE DAY
     Route: 065
     Dates: start: 19980422, end: 199808
  2. ACCUTANE [Suspect]
     Dosage: DOSE AND FREQUENCY: 40 MG AND 80 MG ON ALTERNATE DAYS.
     Route: 065
     Dates: start: 19980904, end: 199811
  3. ALESSE [Concomitant]
     Route: 048

REACTIONS (17)
  - Crohn^s disease [Unknown]
  - Inflammatory bowel disease [Unknown]
  - Stress [Unknown]
  - Depression [Unknown]
  - Platelet count decreased [Recovered/Resolved]
  - Chapped lips [Unknown]
  - Dry skin [Unknown]
  - Headache [Unknown]
  - Nausea [Unknown]
  - Vomiting [Unknown]
  - Xerosis [Unknown]
  - Arthralgia [Unknown]
  - Anaemia [Unknown]
  - Epistaxis [Unknown]
  - Menorrhagia [Unknown]
  - Oesophageal disorder [Unknown]
  - Blood cholesterol increased [Unknown]
